FAERS Safety Report 16922958 (Version 1)
Quarter: 2019Q4

REPORT INFORMATION
  Report Type: Spontaneous
  Country: US (occurrence: US)
  Receive Date: 20191016
  Receipt Date: 20191016
  Transmission Date: 20200122
  Serious: No
  Sender: FDA-Public Use
  Company Number: US-BEH-2019108119

PATIENT
  Age: 75 Year
  Sex: Female

DRUGS (3)
  1. BREO ELLIPTA [Concomitant]
     Active Substance: FLUTICASONE FUROATE\VILANTEROL TRIFENATATE
  2. LATANOPROST. [Concomitant]
     Active Substance: LATANOPROST
  3. HIZENTRA [Suspect]
     Active Substance: HUMAN IMMUNOGLOBULIN G
     Indication: ASTHMA
     Dosage: 10 GRAM, QW
     Route: 058
     Dates: start: 201805

REACTIONS (4)
  - Drug ineffective for unapproved indication [Recovered/Resolved]
  - Malabsorption from injection site [Recovered/Resolved]
  - Infusion site nodule [Recovered/Resolved]
  - Asthma [Recovered/Resolved]

NARRATIVE: CASE EVENT DATE: 20190704
